FAERS Safety Report 13684475 (Version 1)
Quarter: 2017Q2

REPORT INFORMATION
  Report Type: Spontaneous
  Country: US (occurrence: US)
  Receive Date: 20170623
  Receipt Date: 20170623
  Transmission Date: 20170830
  Serious: No
  Sender: FDA-Public Use
  Company Number: US-ASTELLAS-2016US029349

PATIENT
  Sex: Female
  Weight: 122 kg

DRUGS (1)
  1. VESICARE [Suspect]
     Active Substance: SOLIFENACIN SUCCINATE
     Indication: HYPERTONIC BLADDER
     Dosage: 5 MG, ONCE DAILY (10 MG 1/2 PILL A DAY, 5 DAYS A WEEK)
     Route: 065
     Dates: start: 2013

REACTIONS (1)
  - Wrong technique in product usage process [Unknown]
